FAERS Safety Report 7427337-6 (Version None)
Quarter: 2011Q2

REPORT INFORMATION
  Report Type: 
  Country: None (occurrence: None)
  Receive Date: 20110420
  Receipt Date: 20110418
  Transmission Date: 20111010
  Serious: Yes (Other)
  Sender: FDA-Public Use
  Company Number: JP-PFIZER INC-2011074444

PATIENT
  Age: 78 Year
  Sex: Female

DRUGS (4)
  1. LYRICA [Suspect]
     Dosage: 225 MG, DAILY
     Route: 048
     Dates: start: 20100801
  2. ASPIRIN [Concomitant]
     Indication: CEREBRAL INFARCTION
     Dosage: UNK
     Route: 048
  3. LYRICA [Suspect]
     Indication: NEURALGIA
     Dosage: 75 MG, 2X/DAY
     Route: 048
     Dates: start: 20100601
  4. LYRICA [Suspect]
     Dosage: 150 MG, 2X/DAY
     Route: 048
     Dates: start: 20100701

REACTIONS (1)
  - BRADYCARDIA [None]
